FAERS Safety Report 9223227 (Version 1)
Quarter: 2013Q2

REPORT INFORMATION
  Report Type: Report from Study
  Country: GB (occurrence: GB)
  Receive Date: 20130410
  Receipt Date: 20130410
  Transmission Date: 20140414
  Serious: Yes (Other)
  Sender: FDA-Public Use
  Company Number: GB-BAXTER-2013BAX013005

PATIENT
  Sex: 0

DRUGS (2)
  1. CYCLOPHOSPHAMIDE TABLETS 50 MG [Suspect]
     Indication: ANGIOIMMUNOBLASTIC T-CELL LYMPHOMA
     Dosage: DAYS 1 -3, EVERY 28 DAYS
     Route: 048
  2. FLUDARABINE [Suspect]
     Indication: ANGIOIMMUNOBLASTIC T-CELL LYMPHOMA
     Dosage: DAYS 1 -3, EVERY 28 DAYS

REACTIONS (2)
  - Toxicity to various agents [Unknown]
  - Haematotoxicity [None]
